FAERS Safety Report 6357724-9 (Version None)
Quarter: 2009Q3

REPORT INFORMATION
  Report Type: 
  Country: None (occurrence: None)
  Receive Date: 20090916
  Receipt Date: 20090910
  Transmission Date: 20100115
  Serious: Yes (Death)
  Sender: FDA-Public Use
  Company Number: US-AMGEN-US361155

PATIENT
  Age: 11 Year
  Sex: Male
  Weight: 39.5 kg

DRUGS (2)
  1. ENBREL [Suspect]
     Indication: IDIOPATHIC PNEUMONIA SYNDROME
     Dates: start: 20090813, end: 20090813
  2. METHYLPREDNISOLONE [Concomitant]
     Dates: start: 20090813, end: 20090815

REACTIONS (5)
  - DISSEMINATED INTRAVASCULAR COAGULATION [None]
  - GASTROINTESTINAL HAEMORRHAGE [None]
  - HEPATIC FAILURE [None]
  - PNEUMONIA [None]
  - RECTAL HAEMORRHAGE [None]
